FAERS Safety Report 13957993 (Version 4)
Quarter: 2017Q4

REPORT INFORMATION
  Report Type: Report from Study
  Country: US (occurrence: US)
  Receive Date: 20170912
  Receipt Date: 20171026
  Transmission Date: 20180320
  Serious: No
  Sender: FDA-Public Use
  Company Number: PHEH2017US028651

PATIENT
  Sex: Female

DRUGS (2)
  1. COSENTYX [Suspect]
     Active Substance: SECUKINUMAB
     Indication: PSORIATIC ARTHROPATHY
     Dosage: 300 MG, QMO
     Route: 058
     Dates: start: 20161104
  2. CYMBALTA [Suspect]
     Active Substance: DULOXETINE HYDROCHLORIDE
     Indication: FIBROMYALGIA
     Route: 065

REACTIONS (13)
  - Gastrointestinal disorder [Not Recovered/Not Resolved]
  - Fibromyalgia [Unknown]
  - Middle insomnia [Unknown]
  - Pruritus [Unknown]
  - Drug effect decreased [Unknown]
  - Dry skin [Unknown]
  - Abnormal dreams [Unknown]
  - Swelling face [Unknown]
  - Fatigue [Unknown]
  - Hypersensitivity [Unknown]
  - Myalgia [Unknown]
  - Skin fissures [Unknown]
  - Arthralgia [Unknown]
